FAERS Safety Report 20577160 (Version 1)
Quarter: 2022Q1

REPORT INFORMATION
  Report Type: Spontaneous
  Country: US (occurrence: US)
  Receive Date: 20220310
  Receipt Date: 20220310
  Transmission Date: 20220423
  Serious: No
  Sender: FDA-Public Use
  Company Number: US-TEVA-2022-US-2005883

PATIENT
  Age: 71 Year
  Sex: Female

DRUGS (26)
  1. DEMEROL [Suspect]
     Active Substance: MEPERIDINE HYDROCHLORIDE
     Route: 065
  2. INDERAL [Suspect]
     Active Substance: PROPRANOLOL HYDROCHLORIDE
     Route: 065
  3. ROBAXIN [Suspect]
     Active Substance: METHOCARBAMOL
     Route: 065
  4. SEROQUEL [Suspect]
     Active Substance: QUETIAPINE FUMARATE
     Route: 065
  5. AUSTEDO [Concomitant]
     Active Substance: DEUTETRABENAZINE
     Indication: Tardive dyskinesia
     Dosage: 12 MILLIGRAM DAILY;
     Route: 065
  6. AUSTEDO [Concomitant]
     Active Substance: DEUTETRABENAZINE
     Dosage: 18 MILLIGRAM DAILY;
     Route: 065
  7. AUSTEDO [Concomitant]
     Active Substance: DEUTETRABENAZINE
     Dosage: 24 MILLIGRAM DAILY;
     Route: 065
  8. AUSTEDO [Concomitant]
     Active Substance: DEUTETRABENAZINE
     Dosage: 30 MILLIGRAM DAILY;
     Route: 065
  9. AUSTEDO [Concomitant]
     Active Substance: DEUTETRABENAZINE
     Dosage: 36 MILLIGRAM DAILY;
     Route: 065
  10. BUSPIRONE [Concomitant]
     Active Substance: BUSPIRONE HYDROCHLORIDE
     Dosage: 15 MILLIGRAM DAILY;
     Route: 065
  11. CARAFATE [Concomitant]
     Active Substance: SUCRALFATE
     Dosage: 3 GRAM DAILY;
     Route: 065
  12. CARVEDILOL [Concomitant]
     Active Substance: CARVEDILOL
     Dosage: 50 MILLIGRAM DAILY;
     Route: 065
  13. CRESTOR [Concomitant]
     Active Substance: ROSUVASTATIN CALCIUM
     Dosage: 10 MILLIGRAM DAILY;
     Route: 065
  14. CYCLOBENZAPRINE [Concomitant]
     Active Substance: CYCLOBENZAPRINE
     Dosage: 30 MILLIGRAM DAILY;
     Route: 065
  15. ELIQUIS [Concomitant]
     Active Substance: APIXABAN
     Dosage: 10 MILLIGRAM DAILY;
     Route: 065
  16. ESCITALOPRAM [Concomitant]
     Active Substance: ESCITALOPRAM OXALATE
     Dosage: 5 MILLIGRAM DAILY;
     Route: 065
  17. KEPPRA [Concomitant]
     Active Substance: LEVETIRACETAM
     Dosage: 2000 MILLIGRAM DAILY;
     Route: 065
  18. LEVOTHYROXINE [Concomitant]
     Active Substance: LEVOTHYROXINE
     Dosage: 25 MICROGRAM DAILY;
     Route: 065
  19. LOSARTAN [Concomitant]
     Active Substance: LOSARTAN
     Dosage: 50 MILLIGRAM DAILY;
     Route: 065
  20. PANTOPRAZOLE [Concomitant]
     Active Substance: PANTOPRAZOLE
     Dosage: 80 MILLIGRAM DAILY;
     Route: 065
  21. RISPERIDONE [Concomitant]
     Active Substance: RISPERIDONE
     Dosage: 1.5 TABLETS DAILY AT BEDTIME
     Route: 065
  22. ROPINIROLE [Concomitant]
     Active Substance: ROPINIROLE
     Dosage: 5 MILLIGRAM DAILY;
     Route: 065
  23. SPIRONOLACTONE [Concomitant]
     Active Substance: SPIRONOLACTONE
     Dosage: 50 MILLIGRAM DAILY;
     Route: 065
  24. TOPIRAMATE [Concomitant]
     Active Substance: TOPIRAMATE
     Dosage: SPRINKLE 2 TABLETS IN AM AND 1 TABLET IN PM
     Route: 065
  25. TRAMADOL [Concomitant]
     Active Substance: TRAMADOL
     Dosage: 50 MILLIGRAM DAILY;
     Route: 065
  26. TRAZODONE [Concomitant]
     Active Substance: TRAZODONE HYDROCHLORIDE
     Route: 065

REACTIONS (1)
  - Drug hypersensitivity [Unknown]
